FAERS Safety Report 9394842 (Version 1)
Quarter: 2013Q3

REPORT INFORMATION
  Report Type: Spontaneous
  Country: JP (occurrence: JP)
  Receive Date: 20130711
  Receipt Date: 20130711
  Transmission Date: 20140515
  Serious: Yes (Other)
  Sender: FDA-Public Use
  Company Number: JP-ELI_LILLY_AND_COMPANY-JP201307000522

PATIENT
  Age: 69 Year
  Sex: Female

DRUGS (6)
  1. ALIMTA [Suspect]
     Route: 042
  2. CARBOPLATIN [Concomitant]
  3. TARCEVA [Concomitant]
  4. ARIMIDEX [Concomitant]
  5. FOLIC ACID [Concomitant]
  6. VITAMIN B12                        /00056201/ [Concomitant]

REACTIONS (4)
  - Altered state of consciousness [Unknown]
  - Convulsion [Unknown]
  - Renal disorder [Unknown]
  - Liver disorder [Unknown]
